FAERS Safety Report 5020948-7 (Version None)
Quarter: 2006Q2

REPORT INFORMATION
  Report Type: 
  Country: None (occurrence: None)
  Receive Date: 20060607
  Receipt Date: 20060607
  Transmission Date: 20061013
  Serious: Yes (Hospitalization)
  Sender: FDA-Public Use
  Company Number: None

PATIENT
  Age: 83 Year
  Sex: Male
  Weight: 84 kg

DRUGS (14)
  1. AMIODARONE    200MG [Suspect]
     Indication: ATRIAL TACHYCARDIA
     Dosage: 600 QD X7, 400 QD X5  200 QD    QD  PO
     Route: 048
     Dates: start: 20060217, end: 20060304
  2. AMIODARONE    200MG [Suspect]
     Indication: POST PROCEDURAL COMPLICATION
     Dosage: 600 QD X7, 400 QD X5  200 QD    QD  PO
     Route: 048
     Dates: start: 20060217, end: 20060304
  3. ATENOLOL [Suspect]
     Indication: HYPERTENSION
     Dosage: 100MG  QD  PO
     Route: 048
     Dates: start: 20010721, end: 20060304
  4. GATIFLOXACIN [Concomitant]
  5. ALLOPURINOL [Concomitant]
  6. AMIODARONE HCL [Concomitant]
  7. ASPIRIN [Concomitant]
  8. BISACODYL [Concomitant]
  9. DOCUSATE NA [Concomitant]
  10. FELODIPINE [Concomitant]
  11. ACETAMINOPHEN AND HYDROCODONE BITARTRATE [Concomitant]
  12. INDOMETHACIN [Concomitant]
  13. PANTOPRAZOLE [Concomitant]
  14. SIMVASTATIN [Concomitant]

REACTIONS (3)
  - BLOOD PRESSURE ORTHOSTATIC DECREASED [None]
  - BRADYCARDIA [None]
  - DIZZINESS [None]
